FAERS Safety Report 25932124 (Version 1)
Quarter: 2025Q4

REPORT INFORMATION
  Report Type: Report from Study
  Country: US (occurrence: US)
  Receive Date: 20251016
  Receipt Date: 20251016
  Transmission Date: 20260118
  Serious: Yes (Hospitalization, Other)
  Sender: GILEAD
  Company Number: US-GILEAD-2025-0732148

PATIENT
  Age: 55 Year
  Sex: Male

DRUGS (14)
  1. AZTREONAM LYSINE [Suspect]
     Active Substance: AZTREONAM LYSINE
     Indication: Cystic fibrosis
     Dosage: INHALE 75 MG BYNEBULIZATION EVERY 8(EIGHT) HOURS CYCLING 28DAYS ON AND 28 DAYS OFF
     Route: 055
     Dates: start: 20150325
  2. ADVAIR HFA [Concomitant]
     Active Substance: FLUTICASONE PROPIONATE\SALMETEROL XINAFOATE
  3. ALLOPURINOL [Concomitant]
     Active Substance: ALLOPURINOL
  4. AZITHROMYCIN [Concomitant]
     Active Substance: AZITHROMYCIN
  5. BASAGLAR [Concomitant]
     Active Substance: INSULIN GLARGINE
  6. CALCITRIOL [Concomitant]
     Active Substance: CALCITRIOL
  7. CARVEDILOL [Concomitant]
     Active Substance: CARVEDILOL
  8. FUROSEMIDE [Concomitant]
     Active Substance: FUROSEMIDE
  9. IPRATROPIUM [Concomitant]
     Active Substance: IPRATROPIUM
  10. LOKELMA [SODIUM ZIRCONIUM CYCLOSILICATE] [Concomitant]
  11. MONTELUKAST [Concomitant]
     Active Substance: MONTELUKAST
  12. ONDANSETRON [Concomitant]
     Active Substance: ONDANSETRON
  13. PANTOPRAZOLE [Concomitant]
     Active Substance: PANTOPRAZOLE
  14. PREDNISONE [Concomitant]
     Active Substance: PREDNISONE

REACTIONS (1)
  - Infective pulmonary exacerbation of cystic fibrosis [Unknown]
